FAERS Safety Report 4465050-8 (Version None)
Quarter: 2004Q3

REPORT INFORMATION
  Report Type: 
  Country: None (occurrence: None)
  Receive Date: 20040928
  Receipt Date: 20040928
  Transmission Date: 20050211
  Serious: Yes (Life-Threatening, Hospitalization)
  Sender: FDA-Public Use
  Company Number: None

PATIENT
  Age: 8 Year
  Sex: Female
  Weight: 52.1637 kg

DRUGS (2)
  1. PENICILLIN [Suspect]
     Indication: STEVENS-JOHNSON SYNDROME
     Dates: start: 19950202, end: 19950228
  2. CODEINE [Suspect]

REACTIONS (1)
  - STEVENS-JOHNSON SYNDROME [None]
